FAERS Safety Report 7814257-8 (Version None)
Quarter: 2011Q4

REPORT INFORMATION
  Report Type: 
  Country: None (occurrence: None)
  Receive Date: 20111014
  Receipt Date: 20110930
  Transmission Date: 20120403
  Serious: Yes (Death, Congenital Anomaly)
  Sender: FDA-Public Use
  Company Number: CA-MUTUAL PHARMACEUTICAL COMPANY, INC.-ALLP20110001

PATIENT
  Sex: Male
  Weight: 3.593 kg

DRUGS (3)
  1. METHYLDOPA [Concomitant]
     Route: 064
  2. MULTI-VITAMINS [Concomitant]
     Route: 064
  3. ALLOPURINOL [Suspect]
     Route: 064

REACTIONS (20)
  - ANOMALY OF EXTERNAL EAR CONGENITAL [None]
  - CONGENITAL CENTRAL NERVOUS SYSTEM ANOMALY [None]
  - MICROPHTHALMOS [None]
  - MICROTIA [None]
  - SINGLE FUNCTIONAL KIDNEY [None]
  - ACCESSORY SPLEEN [None]
  - CONGENITAL HYDROCEPHALUS [None]
  - MATERNAL DRUGS AFFECTING FOETUS [None]
  - CARDIAC FAILURE [None]
  - CRYPTORCHISM [None]
  - HYPERTELORISM OF ORBIT [None]
  - COLOBOMA [None]
  - OPTIC ATROPHY [None]
  - SKULL MALFORMATION [None]
  - KIDNEY ENLARGEMENT [None]
  - PULMONARY HYPOPLASIA [None]
  - CARDIOPULMONARY FAILURE [None]
  - EXTERNAL AUDITORY CANAL ATRESIA [None]
  - CLEFT LIP AND PALATE [None]
  - CONGENITAL DIAPHRAGMATIC HERNIA [None]
